FAERS Safety Report 11427632 (Version 3)
Quarter: 2015Q4

REPORT INFORMATION
  Report Type: Spontaneous
  Country: AU (occurrence: AU)
  Receive Date: 20150828
  Receipt Date: 20151211
  Transmission Date: 20160304
  Serious: Yes (Death, Other)
  Sender: FDA-Public Use
  Company Number: AU-009507513-1508AUS011762

PATIENT
  Age: 70 Year
  Sex: Female
  Weight: 87 kg

DRUGS (2)
  1. KEYTRUDA [Suspect]
     Active Substance: PEMBROLIZUMAB
     Dosage: 2 MG/KG, TOTAL DAILY DOSE 174 MG
     Dates: start: 20150811, end: 20150811
  2. KEYTRUDA [Suspect]
     Active Substance: PEMBROLIZUMAB
     Indication: MALIGNANT MELANOMA
     Dosage: 2 MG/KG, TOTAL DAILY DOSE 174 MG
     Route: 042
     Dates: start: 20150721, end: 20150721

REACTIONS (1)
  - Malignant neoplasm progression [Fatal]

NARRATIVE: CASE EVENT DATE: 20150817
